FAERS Safety Report 5518327-9 (Version None)
Quarter: 2007Q4

REPORT INFORMATION
  Report Type: 
  Country: None (occurrence: None)
  Receive Date: 20071115
  Receipt Date: 20071109
  Transmission Date: 20080405
  Serious: Yes (Hospitalization)
  Sender: FDA-Public Use
  Company Number: US-ASTRAZENECA-2007UW21078

PATIENT
  Age: 52 Year
  Sex: Female
  Weight: 69.1 kg

DRUGS (10)
  1. IRESSA [Suspect]
     Indication: NEOPLASM MALIGNANT
     Route: 048
     Dates: start: 20070820, end: 20070830
  2. ATIVAN [Concomitant]
     Indication: INSOMNIA
     Dosage: 1-2 MG
     Route: 048
     Dates: start: 20060101
  3. TYLENOL [Concomitant]
     Indication: PAIN
     Route: 048
     Dates: start: 20060101
  4. MAALOX [Concomitant]
     Indication: DYSPEPSIA
     Route: 048
     Dates: start: 20070815, end: 20070817
  5. CALCIUM [Concomitant]
     Route: 048
     Dates: start: 19950101
  6. SUCRALFATE [Concomitant]
     Indication: DYSPEPSIA
     Route: 048
     Dates: start: 20070823
  7. IMODIUM [Concomitant]
     Indication: DYSPEPSIA
     Route: 048
     Dates: start: 20070825
  8. REGLAN [Concomitant]
     Indication: NAUSEA
     Route: 048
     Dates: start: 20070812
  9. PEPCID [Concomitant]
     Indication: DYSPEPSIA
     Route: 048
     Dates: start: 20070823
  10. DILAUDID [Concomitant]
     Indication: ABDOMINAL PAIN
     Dosage: EVERY 2 HOURS
     Route: 048

REACTIONS (2)
  - ABDOMINAL PAIN [None]
  - URINARY TRACT INFECTION [None]
